FAERS Safety Report 21138612 (Version 1)
Quarter: 2022Q3

REPORT INFORMATION
  Report Type: Spontaneous
  Country: US (occurrence: US)
  Receive Date: 20220727
  Receipt Date: 20220727
  Transmission Date: 20221027
  Serious: No
  Sender: FDA-Public Use
  Company Number: US-PFIZER INC-PV202200030803

PATIENT
  Age: 60 Year
  Sex: Female

DRUGS (2)
  1. XELJANZ [Suspect]
     Active Substance: TOFACITINIB CITRATE
     Indication: Interstitial lung disease
     Dosage: 5 MG, 2X/DAY
     Route: 048
     Dates: start: 20220603
  2. XELJANZ [Suspect]
     Active Substance: TOFACITINIB CITRATE
     Indication: Dermatomyositis

REACTIONS (4)
  - Off label use [Unknown]
  - Pyrexia [Unknown]
  - Swelling face [Unknown]
  - Salivary duct obstruction [Recovering/Resolving]

NARRATIVE: CASE EVENT DATE: 20220601
